FAERS Safety Report 16095046 (Version 3)
Quarter: 2019Q2

REPORT INFORMATION
  Report Type: Spontaneous
  Country: US (occurrence: US)
  Receive Date: 20190320
  Receipt Date: 20190418
  Transmission Date: 20190711
  Serious: Yes (Hospitalization, Other)
  Sender: FDA-Public Use
  Company Number: US-AUROBINDO-AUR-APL-2019-014445

PATIENT

DRUGS (3)
  1. FLUCONAZOLE TABLETS 100 MG [Suspect]
     Active Substance: FLUCONAZOLE
     Indication: FUNGAL INFECTION
     Dosage: 100 MILLIGRAM
     Route: 048
     Dates: start: 20180917
  2. FLUCONAZOLE TABLETS 100 MG [Suspect]
     Active Substance: FLUCONAZOLE
     Dosage: 150 MILLIGRAM
  3. ACCUPRIL [Concomitant]
     Active Substance: QUINAPRIL HYDROCHLORIDE
     Indication: HYPERTENSION
     Dosage: MORNING AND EVENING
     Route: 048

REACTIONS (4)
  - Drug ineffective [Recovered/Resolved]
  - Urinary tract infection [Recovered/Resolved]
  - Dysuria [Recovered/Resolved]
  - Clostridium difficile infection [Recovered/Resolved]

NARRATIVE: CASE EVENT DATE: 20180917
